FAERS Safety Report 18341482 (Version 1)
Quarter: 2020Q4

REPORT INFORMATION
  Report Type: Spontaneous
  Country: FR (occurrence: FR)
  Receive Date: 20201004
  Receipt Date: 20201004
  Transmission Date: 20210113
  Serious: Yes (Hospitalization)
  Sender: FDA-Public Use
  Company Number: FR-TEVA-2020-FR-1833805

PATIENT
  Age: 56 Year
  Sex: Male
  Weight: 81 kg

DRUGS (11)
  1. VINBLASTINE (SULFATE DE) [Suspect]
     Active Substance: VINBLASTINE SULFATE
     Indication: HODGKIN^S DISEASE
     Dosage: UNIT DOSE 12MG
     Route: 042
     Dates: start: 202005, end: 20200825
  2. DOXORUBICINE [Suspect]
     Active Substance: DOXORUBICIN
     Indication: HODGKIN^S DISEASE
     Dosage: UNIT DOSE 50MG
     Route: 042
     Dates: start: 202005, end: 20200825
  3. ZOPHREN 8 MG/4 ML, SOLUTION INJECTABLE EN SERINGUE PRE-REMPLIE [Suspect]
     Active Substance: ONDANSETRON
     Indication: PROPHYLACTIC CHEMOTHERAPY
     Dosage: UNIT DOSE 8MG
     Route: 042
     Dates: start: 202005, end: 20200825
  4. EMEND [Suspect]
     Active Substance: APREPITANT
     Indication: PROPHYLACTIC CHEMOTHERAPY
     Dosage: UNIT DOSE 125MG
     Route: 048
     Dates: start: 202005, end: 20200825
  5. BLEOMYCINE [Suspect]
     Active Substance: BLEOMYCIN SULFATE
     Indication: HODGKIN^S DISEASE
     Dosage: UNIT DOSE 20.1MG
     Route: 042
     Dates: start: 202005, end: 20200825
  6. OMEXEL [Concomitant]
     Active Substance: TAMSULOSIN HYDROCHLORIDE
  7. DACARBAZINE. [Suspect]
     Active Substance: DACARBAZINE
     Indication: HODGKIN^S DISEASE
     Dosage: UNIT DOSE 750MG
     Route: 042
     Dates: start: 202005, end: 20200825
  8. PANTOPRAZOLE [Concomitant]
     Active Substance: PANTOPRAZOLE
  9. MEDROL [Suspect]
     Active Substance: METHYLPREDNISOLONE
     Indication: PRODUCT USED FOR UNKNOWN INDICATION
     Dosage: UNIT DOSE 40MG
     Route: 048
  10. PERMIXON [Suspect]
     Active Substance: HERBALS\SAW PALMETTO
     Indication: MICTURITION DISORDER
     Dosage: UNIT DOSE 2DF
     Route: 048
     Dates: end: 20200826
  11. INNOHEP [Concomitant]
     Active Substance: TINZAPARIN SODIUM

REACTIONS (1)
  - Pneumocystis jirovecii pneumonia [Recovering/Resolving]

NARRATIVE: CASE EVENT DATE: 20200825
